FAERS Safety Report 6903246-3 (Version None)
Quarter: 2010Q3

REPORT INFORMATION
  Report Type: 
  Country: None (occurrence: None)
  Receive Date: 20100803
  Receipt Date: 20080904
  Transmission Date: 20110219
  Serious: No
  Sender: FDA-Public Use
  Company Number: US-PFIZER INC-2008078407

PATIENT
  Age: 49 Year
  Sex: Female

DRUGS (7)
  1. LYRICA [Suspect]
     Indication: FIBROMYALGIA
     Dates: start: 20080804
  2. CICLESONIDE [Suspect]
     Indication: MULTIPLE ALLERGIES
     Route: 045
     Dates: start: 20080804
  3. CICLESONIDE [Suspect]
     Route: 045
     Dates: start: 20080801, end: 20080903
  4. DESVENLAFAXINE [Suspect]
     Indication: ANXIETY
     Dates: start: 20080804
  5. OMEPRAZOLE [Concomitant]
  6. LORTAB [Concomitant]
  7. SYNTHROID [Concomitant]

REACTIONS (2)
  - ARTHRALGIA [None]
  - MYALGIA [None]
